FAERS Safety Report 19937161 (Version 1)
Quarter: 2021Q4

REPORT INFORMATION
  Report Type: Spontaneous
  Country: US (occurrence: US)
  Receive Date: 20211010
  Receipt Date: 20211010
  Transmission Date: 20220303
  Serious: Yes (Other)
  Sender: FDA-Public Use
  Company Number: 2021A762364

PATIENT
  Age: 25 Year
  Sex: Male

DRUGS (1)
  1. TAGRISSO [Suspect]
     Active Substance: OSIMERTINIB
     Route: 048

REACTIONS (8)
  - Febrile neutropenia [Unknown]
  - Herpes simplex sepsis [Unknown]
  - Septic shock [Unknown]
  - Neurological symptom [Unknown]
  - Haemoptysis [Unknown]
  - Dyspnoea [Unknown]
  - Bacteraemia [Unknown]
  - Mucosal inflammation [Unknown]
